FAERS Safety Report 23730392 (Version 1)
Quarter: 2024Q2

REPORT INFORMATION
  Report Type: Spontaneous
  Country: CA (occurrence: CA)
  Receive Date: 20240411
  Receipt Date: 20240411
  Transmission Date: 20240715
  Serious: Yes (Hospitalization)
  Sender: FDA-Public Use
  Company Number: None

PATIENT
  Age: 78 Year
  Sex: Male

DRUGS (17)
  1. FLUOROURACIL [Suspect]
     Active Substance: FLUOROURACIL
     Indication: Product used for unknown indication
     Route: 042
  2. OXALIPLATIN [Suspect]
     Active Substance: OXALIPLATIN
     Indication: Product used for unknown indication
     Route: 042
  3. LEUCOVORIN [Suspect]
     Active Substance: LEUCOVORIN\LEUCOVORIN CALCIUM
     Indication: Colon cancer
     Dosage: 1 EVERY 14 DAYS
     Route: 042
  4. ALTACE [Concomitant]
     Active Substance: RAMIPRIL
  5. DEXAMETHASONE [Concomitant]
     Active Substance: DEXAMETHASONE
  6. ASPIRIN [Concomitant]
     Active Substance: ASPIRIN
     Dosage: (DELAYED- RELEASE)
  7. TAMSULOSIN [Concomitant]
     Active Substance: TAMSULOSIN
     Dosage: TABLET (EXTENDED- RELEASE)
  8. LEUCOVORIN [Concomitant]
     Active Substance: LEUCOVORIN\LEUCOVORIN CALCIUM
  9. GLUCOPHAGE [Concomitant]
     Active Substance: METFORMIN HYDROCHLORIDE
  10. LOPERAMIDE [Concomitant]
     Active Substance: LOPERAMIDE
  11. LOSEC [Concomitant]
     Active Substance: OMEPRAZOLE
  12. DIPHENHYDRAMINE HYDROCHLORIDE\LIDOCAINE HYDROCHLORIDE\NYSTATIN [Concomitant]
     Active Substance: DIPHENHYDRAMINE HYDROCHLORIDE\LIDOCAINE HYDROCHLORIDE\NYSTATIN
  13. METOCLOPRAMIDE [Concomitant]
     Active Substance: METOCLOPRAMIDE
  14. METOPROLOL [Concomitant]
     Active Substance: METOPROLOL
     Route: 065
  15. MIRABEGRON [Concomitant]
     Active Substance: MIRABEGRON
     Dosage: TABLET (EXTENDED- RELEASE)
  16. ONDANSETRON [Concomitant]
     Active Substance: ONDANSETRON
  17. OXALIPLATIN [Suspect]
     Active Substance: OXALIPLATIN
     Indication: Colon cancer
     Dosage: 1 EVERY 14 DAYS
     Route: 042

REACTIONS (6)
  - Decreased appetite [Recovered/Resolved]
  - Diarrhoea [Recovered/Resolved]
  - Mucosal inflammation [Recovered/Resolved]
  - Muscular weakness [Recovered/Resolved]
  - Parenteral nutrition [Recovered/Resolved]
  - Rectal haemorrhage [Recovered/Resolved]
